FAERS Safety Report 23097518 (Version 2)
Quarter: 2023Q4

REPORT INFORMATION
  Report Type: Spontaneous
  Country: US (occurrence: US)
  Receive Date: 20231023
  Receipt Date: 20231108
  Transmission Date: 20240109
  Serious: No
  Sender: FDA-Public Use
  Company Number: US-TORRENT-00012932

PATIENT
  Sex: Female
  Weight: 63 kg

DRUGS (2)
  1. ISOSORBIDE MONONITRATE [Suspect]
     Active Substance: ISOSORBIDE MONONITRATE
     Indication: Arterial spasm
     Dosage: 12 DAYS AGO
     Route: 048
     Dates: start: 20230929
  2. PINDOLOL [Concomitant]
     Active Substance: PINDOLOL
     Indication: Tachycardia
     Route: 065

REACTIONS (1)
  - Headache [Recovered/Resolved]

NARRATIVE: CASE EVENT DATE: 20230929
